FAERS Safety Report 12790532 (Version 1)
Quarter: 2016Q3

REPORT INFORMATION
  Report Type: Spontaneous
  Country: US (occurrence: US)
  Receive Date: 20160929
  Receipt Date: 20160929
  Transmission Date: 20161109
  Serious: No
  Sender: FDA-Public Use
  Company Number: US-JNJFOC-20160924128

PATIENT
  Sex: Female

DRUGS (2)
  1. ZYRTEC [Suspect]
     Active Substance: CETIRIZINE HYDROCHLORIDE
     Indication: MULTIPLE ALLERGIES
     Route: 065
  2. ZYRTEC [Suspect]
     Active Substance: CETIRIZINE HYDROCHLORIDE
     Route: 065

REACTIONS (8)
  - Skin haemorrhage [Unknown]
  - Discomfort [Unknown]
  - Skin disorder [Unknown]
  - Pain [Unknown]
  - Pruritus [Not Recovered/Not Resolved]
  - Skin burning sensation [Unknown]
  - Drug ineffective [Unknown]
  - Withdrawal syndrome [Unknown]
